FAERS Safety Report 9648414 (Version 1)
Quarter: 2013Q4

REPORT INFORMATION
  Report Type: Spontaneous
  Country: US (occurrence: None)
  Receive Date: 20131024
  Receipt Date: 20131024
  Transmission Date: 20140711
  Serious: Yes (Hospitalization, Other)
  Sender: FDA-Public Use
  Company Number: 2013-US-002118

PATIENT
  Age: 32 Year
  Sex: Female

DRUGS (1)
  1. XYREM [Suspect]
     Indication: NARCOLEPSY
     Route: 048
     Dates: start: 201210, end: 201210

REACTIONS (6)
  - Pneumonia [None]
  - Drug tolerance [None]
  - Sleep apnoea syndrome [None]
  - Middle ear effusion [None]
  - Peripheral coldness [None]
  - Somnambulism [None]
